FAERS Safety Report 9132647 (Version 1)
Quarter: 2013Q1

REPORT INFORMATION
  Report Type: Spontaneous
  Country: US (occurrence: US)
  Receive Date: 20130120
  Receipt Date: 20130120
  Transmission Date: 20140127
  Serious: No
  Sender: FDA-Public Use
  Company Number: US-ALLERGAN-1212455US

PATIENT
  Sex: Female

DRUGS (3)
  1. BOTOX COSMETIC [Suspect]
     Indication: SKIN WRINKLING
     Dosage: 25 UNITS, SINGLE
     Route: 030
     Dates: start: 20120831, end: 20120831
  2. BOTOX COSMETIC [Suspect]
     Indication: SKIN WRINKLING
     Dosage: 50 UNITS, SINGLE
     Route: 030
     Dates: start: 20120831, end: 20120831
  3. JUVEDERM [Suspect]
     Indication: SKIN WRINKLING

REACTIONS (4)
  - Eye swelling [Unknown]
  - Abnormal sensation in eye [Unknown]
  - Incorrect dose administered [Unknown]
  - Facial paresis [Unknown]
